FAERS Safety Report 9565920 (Version 1)
Quarter: 2013Q3

REPORT INFORMATION
  Report Type: Spontaneous
  Country: CH (occurrence: CH)
  Receive Date: 20130930
  Receipt Date: 20130930
  Transmission Date: 20140515
  Serious: Yes (Hospitalization)
  Sender: FDA-Public Use
  Company Number: CH-MYLANLABS-2013S1021117

PATIENT
  Age: 67 Year
  Sex: Female

DRUGS (2)
  1. MORPHINE [Suspect]
     Indication: BACK PAIN
     Dosage: UNKNOWN DOSAGE; THEN INCREASED
     Route: 037
  2. CALCIUM CARBONATE [Suspect]
     Indication: OSTEOPOROSIS
     Route: 065

REACTIONS (5)
  - Milk-alkali syndrome [Recovered/Resolved]
  - Vomiting [Recovered/Resolved]
  - Hypoventilation [Recovering/Resolving]
  - Condition aggravated [Recovering/Resolving]
  - Overdose [Recovering/Resolving]
